FAERS Safety Report 8581062-7 (Version None)
Quarter: 2012Q3

REPORT INFORMATION
  Report Type: 
  Country: None (occurrence: None)
  Receive Date: 20120809
  Receipt Date: 20120802
  Transmission Date: 20120928
  Serious: Yes (Hospitalization)
  Sender: FDA-Public Use
  Company Number: 2012SP002012

PATIENT
  Age: 36 Year
  Sex: Female

DRUGS (14)
  1. CLONAZEPAM [Concomitant]
     Indication: PRODUCT USED FOR UNKNOWN INDICATION
  2. DONNATAL [Concomitant]
     Indication: PRODUCT USED FOR UNKNOWN INDICATION
  3. LAMICTAL [Concomitant]
     Indication: PRODUCT USED FOR UNKNOWN INDICATION
  4. NEXIUM /01479303/ [Concomitant]
     Indication: PRODUCT USED FOR UNKNOWN INDICATION
  5. LAXATIVES [Concomitant]
     Indication: PRODUCT USED FOR UNKNOWN INDICATION
  6. LATUDA [Suspect]
     Route: 048
     Dates: start: 20100101
  7. TRAMADOL HCL [Concomitant]
     Indication: PRODUCT USED FOR UNKNOWN INDICATION
  8. LATUDA [Suspect]
     Indication: SCHIZOPHRENIA
     Route: 048
  9. PERCOCET [Concomitant]
     Indication: PRODUCT USED FOR UNKNOWN INDICATION
  10. ZOFRAN [Concomitant]
     Indication: NAUSEA
  11. ZOFRAN [Concomitant]
     Indication: VOMITING
  12. LATUDA [Suspect]
     Route: 048
  13. EFFEXOR [Concomitant]
     Indication: PRODUCT USED FOR UNKNOWN INDICATION
  14. LITHIUM CARBONATE [Concomitant]
     Indication: SCHIZOPHRENIA

REACTIONS (3)
  - GASTRIC MUCOSAL LESION [None]
  - GASTROINTESTINAL DISORDER [None]
  - GALLBLADDER DISORDER [None]
